FAERS Safety Report 6264396-0 (Version None)
Quarter: 2009Q3

REPORT INFORMATION
  Report Type: 
  Country: None (occurrence: None)
  Receive Date: 20090710
  Receipt Date: 20090703
  Transmission Date: 20100115
  Serious: Yes (Hospitalization)
  Sender: FDA-Public Use
  Company Number: B0582053A

PATIENT
  Sex: Male

DRUGS (3)
  1. AMOXICILLIN TRIHYDRATE [Suspect]
     Indication: TONSILLITIS
     Route: 048
     Dates: start: 20090403, end: 20090413
  2. ADVIL [Suspect]
     Route: 048
     Dates: start: 20090403, end: 20090413
  3. ORELOX [Concomitant]
     Indication: OTITIS MEDIA ACUTE
     Route: 065
     Dates: start: 20090418

REACTIONS (16)
  - APPETITE DISORDER [None]
  - CHEILITIS [None]
  - CONJUNCTIVITIS [None]
  - CYTOMEGALOVIRUS ANTIBODY POSITIVE [None]
  - DYSPHAGIA [None]
  - EAR CONGESTION [None]
  - GENERAL PHYSICAL HEALTH DETERIORATION [None]
  - INFLAMMATION [None]
  - LARYNGEAL OEDEMA [None]
  - LYMPHADENOPATHY [None]
  - MUCOUS MEMBRANE DISORDER [None]
  - PAIN [None]
  - PYREXIA [None]
  - RASH MACULO-PAPULAR [None]
  - SKIN LESION [None]
  - STEVENS-JOHNSON SYNDROME [None]
